FAERS Safety Report 7028533-2 (Version None)
Quarter: 2010Q4

REPORT INFORMATION
  Report Type: 
  Country: None (occurrence: None)
  Receive Date: 20101005
  Receipt Date: 20100927
  Transmission Date: 20110411
  Serious: No
  Sender: FDA-Public Use
  Company Number: US-JNJFOC-20100908607

PATIENT
  Sex: Female
  Weight: 68.49 kg

DRUGS (6)
  1. SANDOZ FENTANYL TRANSDERMAL SYSTEM [Suspect]
     Indication: BACK PAIN
     Dosage: NDC-0781-40-55
     Route: 062
  2. SANDOZ FENTANYL TRANSDERMAL SYSTEM [Suspect]
     Dosage: NDC-0781-7241-55
     Route: 062
  3. KLONOPIN [Concomitant]
     Indication: FIBROMYALGIA
     Route: 048
  4. DIURETIC [Concomitant]
     Indication: HYPERTENSION
     Route: 048
  5. SYNTHROID [Concomitant]
     Indication: HYPOTHYROIDISM
     Route: 048
  6. PRILOSEC [Concomitant]
     Indication: OESOPHAGEAL DISORDER
     Route: 048

REACTIONS (1)
  - WRONG TECHNIQUE IN DRUG USAGE PROCESS [None]
